FAERS Safety Report 4276609-5 (Version None)
Quarter: 2004Q1

REPORT INFORMATION
  Report Type: 
  Country: None (occurrence: None)
  Receive Date: 20040120
  Receipt Date: 20040112
  Transmission Date: 20041129
  Serious: Yes (Hospitalization, Other)
  Sender: FDA-Public Use
  Company Number: US-JNJFOC-20031204405

PATIENT
  Age: 75 Year
  Sex: Female
  Weight: 49.8957 kg

DRUGS (2)
  1. ELMIRON [Suspect]
     Indication: CYSTITIS INTERSTITIAL
     Dosage: PATIENT HAS TAKEN PRODUCT ^FOR YEARS^
  2. ELMIRON [Suspect]
     Indication: URINARY TRACT INFECTION
     Dosage: PATIENT HAS TAKEN PRODUCT ^FOR YEARS^

REACTIONS (2)
  - LUNG NEOPLASM MALIGNANT [None]
  - URINARY TRACT INFECTION [None]
